FAERS Safety Report 8583753-0 (Version None)
Quarter: 2012Q3

REPORT INFORMATION
  Report Type: 
  Country: None (occurrence: None)
  Receive Date: 20120810
  Receipt Date: 20120724
  Transmission Date: 20120928
  Serious: Yes (Other)
  Sender: FDA-Public Use
  Company Number: CA-009507513-1208CAN000238

PATIENT

DRUGS (9)
  1. DEXAMETHASONE [Suspect]
     Indication: GLIOBLASTOMA MULTIFORME
     Dosage: 12 MG, QD
     Route: 048
  2. DEXAMETHASONE [Suspect]
     Dosage: 8 MG, QD
  3. DEXAMETHASONE [Suspect]
     Dosage: 12 MG, QD
  4. TEMODAL [Suspect]
     Indication: GLIOBLASTOMA MULTIFORME
     Dosage: 150 MG/M2, QD
     Route: 048
  5. DEXAMETHASONE [Suspect]
     Dosage: 4 MG, QD
  6. DEXAMETHASONE [Suspect]
     Dosage: 16 MG, QD
  7. TEMODAL [Suspect]
     Dosage: 200 MG/M2, QD
     Route: 048
  8. DEXAMETHASONE [Suspect]
     Dosage: 12 MG, QD
  9. TEMODAL [Suspect]
     Dosage: 75 MG/M2, QD

REACTIONS (10)
  - HYPERGLYCAEMIA [None]
  - HEPATIC STEATOSIS [None]
  - APHASIA [None]
  - MENTAL DISORDER [None]
  - TRANSAMINASES INCREASED [None]
  - HEADACHE [None]
  - FATIGUE [None]
  - MOTOR DYSFUNCTION [None]
  - CONFUSIONAL STATE [None]
  - MYOPATHY [None]
